FAERS Safety Report 16734670 (Version 1)
Quarter: 2019Q3

REPORT INFORMATION
  Report Type: Spontaneous
  Country: CA (occurrence: CA)
  Receive Date: 20190823
  Receipt Date: 20190823
  Transmission Date: 20191005
  Serious: Yes (Death, Hospitalization)
  Sender: FDA-Public Use
  Company Number: PHHY2019CA196659

PATIENT
  Age: 65 Year
  Sex: Female

DRUGS (4)
  1. SUTENT [Suspect]
     Active Substance: SUNITINIB MALATE
     Indication: NEOPLASM MALIGNANT
     Route: 065
  2. SANDOSTATIN [Suspect]
     Active Substance: OCTREOTIDE ACETATE
     Indication: PANCREATIC NEUROENDOCRINE TUMOUR METASTATIC
     Dosage: UNK
     Route: 058
  3. SANDOSTATIN LAR DEPOT [Suspect]
     Active Substance: OCTREOTIDE ACETATE
     Indication: PANCREATIC NEUROENDOCRINE TUMOUR METASTATIC
     Dosage: 30 MG, QMO
     Route: 030
  4. AFINITOR [Suspect]
     Active Substance: EVEROLIMUS
     Indication: PANCREATIC NEUROENDOCRINE TUMOUR METASTATIC
     Dosage: 10 MG, QD
     Route: 048

REACTIONS (26)
  - Heart rate irregular [Fatal]
  - Lower respiratory tract infection [Fatal]
  - Blood pressure decreased [Fatal]
  - Blood pressure systolic increased [Fatal]
  - Confusional state [Fatal]
  - Dysgeusia [Fatal]
  - Vomiting [Fatal]
  - Anxiety [Fatal]
  - Pain [Fatal]
  - Abdominal discomfort [Fatal]
  - Abnormal behaviour [Fatal]
  - Lung infection [Fatal]
  - Blood glucose increased [Fatal]
  - Fatigue [Fatal]
  - Influenza [Fatal]
  - Weight decreased [Fatal]
  - Death [Fatal]
  - Slow speech [Fatal]
  - Swollen tongue [Fatal]
  - Tremor [Fatal]
  - Cough [Fatal]
  - Diarrhoea [Fatal]
  - Nausea [Fatal]
  - Abdominal pain [Fatal]
  - Body temperature decreased [Fatal]
  - Decreased activity [Fatal]
